FAERS Safety Report 6613652-2 (Version None)
Quarter: 2010Q1

REPORT INFORMATION
  Report Type: 
  Country: None (occurrence: None)
  Receive Date: 20100304
  Receipt Date: 20090812
  Transmission Date: 20100710
  Serious: Yes (Other)
  Sender: FDA-Public Use
  Company Number: CHPA2009US13815

PATIENT
  Age: 26 Year
  Sex: Female
  Weight: 97.506 kg

DRUGS (2)
  1. THERAFLU COLD AND COUGH (NCH) [Suspect]
     Indication: NASOPHARYNGITIS
     Dosage: 0.5 DF, ONCE/SINGLE
     Route: 048
     Dates: start: 20090617, end: 20090617
  2. THERAFLU COLD AND COUGH (NCH) [Suspect]
     Indication: COUGH

REACTIONS (3)
  - BURNS SECOND DEGREE [None]
  - NIGHTMARE [None]
  - SCAR [None]
